FAERS Safety Report 5569584-4 (Version None)
Quarter: 2007Q4

REPORT INFORMATION
  Report Type: 
  Country: None (occurrence: None)
  Receive Date: 20071220
  Receipt Date: 20071219
  Transmission Date: 20080405
  Serious: Yes (Life-Threatening)
  Sender: FDA-Public Use
  Company Number: US-BAXTER-2007BH009938

PATIENT
  Age: 1 Hour
  Sex: Female

DRUGS (1)
  1. DEXTROSE 10% [Suspect]
     Indication: PREMATURE BABY
     Dosage: DOSE UNIT:UNKNOWN
     Route: 042
     Dates: start: 20071105, end: 20071105

REACTIONS (1)
  - CARDIO-RESPIRATORY ARREST [None]
